FAERS Safety Report 6339610-3 (Version None)
Quarter: 2009Q3

REPORT INFORMATION
  Report Type: 
  Country: None (occurrence: None)
  Receive Date: 20090903
  Receipt Date: 20090825
  Transmission Date: 20100115
  Serious: Yes (Life-Threatening)
  Sender: FDA-Public Use
  Company Number: AT-MERCK-0908AUT00006

PATIENT
  Age: 80 Year
  Sex: Female

DRUGS (8)
  1. COZAAR [Suspect]
     Indication: HYPERTENSION
     Route: 048
  2. XIPAMIDE [Suspect]
     Route: 048
  3. FUROSEMIDE [Suspect]
     Route: 048
  4. ALLOPURINOL [Suspect]
     Route: 048
  5. ASCORBIC ACID AND FERROUS FUMARATE [Concomitant]
     Route: 048
  6. LACTULOSE [Concomitant]
     Route: 048
  7. PANTOPRAZOLE SODIUM [Concomitant]
     Route: 048
  8. BUPRENORPHINE [Concomitant]
     Route: 061

REACTIONS (4)
  - ALKALOSIS [None]
  - HYPOKALAEMIA [None]
  - HYPONATRAEMIA [None]
  - RENAL FAILURE [None]
